FAERS Safety Report 15110789 (Version 1)
Quarter: 2018Q3

REPORT INFORMATION
  Report Type: Spontaneous
  Country: IT (occurrence: IT)
  Receive Date: 20180705
  Receipt Date: 20180705
  Transmission Date: 20181010
  Serious: Yes (Other)
  Sender: FDA-Public Use
  Company Number: IT-ELI_LILLY_AND_COMPANY-IT201805010487

PATIENT
  Age: 45 Year
  Sex: Female

DRUGS (2)
  1. CLEXANE T [Concomitant]
     Active Substance: ENOXAPARIN SODIUM
     Indication: PULMONARY EMBOLISM
     Dosage: 12 KIU, UNKNOWN
     Route: 058
  2. LARTRUVO [Suspect]
     Active Substance: OLARATUMAB
     Indication: SOFT TISSUE SARCOMA
     Dosage: 15 MG/KG, CYCLICAL
     Route: 042
     Dates: start: 20180423, end: 20180423

REACTIONS (4)
  - Bradycardia [Recovered/Resolved]
  - Hypotonia [Recovered/Resolved]
  - Extrasystoles [Recovered/Resolved]
  - Loss of consciousness [Recovered/Resolved]

NARRATIVE: CASE EVENT DATE: 20180423
